FAERS Safety Report 8452131-7 (Version None)
Quarter: 2012Q2

REPORT INFORMATION
  Report Type: 
  Country: None (occurrence: None)
  Receive Date: 20120620
  Receipt Date: 20120613
  Transmission Date: 20120825
  Serious: Yes (Other)
  Sender: FDA-Public Use
  Company Number: US-GLAXOSMITHKLINE-A0981709A

PATIENT
  Age: 39 Year
  Sex: Female

DRUGS (8)
  1. CLONAZEPAM [Concomitant]
  2. LAMICTAL [Suspect]
     Indication: CONVULSION
     Dosage: 275MG TWICE PER DAY
     Route: 048
     Dates: start: 20110101
  3. VITAMIN B COMPLEX CAP [Concomitant]
     Route: 048
  4. DILANTIN [Suspect]
     Indication: CONVULSION
     Dosage: 300MG UNKNOWN
     Route: 065
  5. TEGRETOL-XR [Concomitant]
  6. LAMOTRIGINE [Suspect]
     Indication: CONVULSION
     Route: 048
  7. FLAX SEED [Concomitant]
     Route: 048
  8. COCONUT OIL [Concomitant]
     Route: 048

REACTIONS (11)
  - ANTICONVULSANT DRUG LEVEL INCREASED [None]
  - NERVOUS SYSTEM DISORDER [None]
  - DYSTONIA [None]
  - DRUG LEVEL DECREASED [None]
  - DISSOCIATION [None]
  - DRUG INTERACTION [None]
  - CONVULSION [None]
  - MEMORY IMPAIRMENT [None]
  - INCOHERENT [None]
  - AURA [None]
  - DRUG INEFFECTIVE [None]
